FAERS Safety Report 6437345-X (Version None)
Quarter: 2009Q4

REPORT INFORMATION
  Report Type: 
  Country: None (occurrence: None)
  Receive Date: 20091112
  Receipt Date: 20091012
  Transmission Date: 20100525
  Serious: No
  Sender: FDA-Public Use
  Company Number: US-BAYER-200936256NA

PATIENT
  Age: 12 Year
  Sex: Female

DRUGS (1)
  1. CLIMARA [Suspect]
     Indication: TURNER'S SYNDROME
     Route: 062

REACTIONS (1)
  - PRODUCT SHAPE ISSUE [None]
